FAERS Safety Report 6724402-3 (Version None)
Quarter: 2010Q2

REPORT INFORMATION
  Report Type: 
  Country: None (occurrence: None)
  Receive Date: 20100513
  Receipt Date: 20100504
  Transmission Date: 20101027
  Serious: Yes (Other)
  Sender: FDA-Public Use
  Company Number: US-PFIZER INC-2010056567

PATIENT
  Sex: Female
  Weight: 46.712 kg

DRUGS (1)
  1. CHANTIX [Suspect]
     Indication: SMOKING CESSATION THERAPY
     Dosage: 1 MG, UNK
     Route: 048
     Dates: start: 20090627, end: 20090101

REACTIONS (4)
  - AGITATION [None]
  - FEELING ABNORMAL [None]
  - IRRITABILITY [None]
  - VIOLENCE-RELATED SYMPTOM [None]
